FAERS Safety Report 11474185 (Version 1)
Quarter: 2015Q3

REPORT INFORMATION
  Report Type: Spontaneous
  Country: US (occurrence: US)
  Receive Date: 20150908
  Receipt Date: 20150908
  Transmission Date: 20151125
  Serious: No
  Sender: FDA-Public Use
  Company Number: US-JAZZ-2013-US-004444

PATIENT
  Age: 72 Year
  Sex: Female
  Weight: 79.82 kg

DRUGS (39)
  1. NITROFURANTOIN. [Concomitant]
     Active Substance: NITROFURANTOIN
     Indication: URINARY INCONTINENCE
     Dosage: 50 MG, MON. WED. FRI.
     Route: 048
  2. SALICYLATES NOS [Concomitant]
     Active Substance: UNSPECIFIED INGREDIENT
     Indication: FIBROMYALGIA
  3. VITAMIN B12 [Concomitant]
     Active Substance: CYANOCOBALAMIN
     Indication: VITAMIN SUPPLEMENTATION
     Dosage: UNK
     Route: 048
  4. ZINC [Concomitant]
     Active Substance: ZINC\ZINC CHLORIDE
     Indication: MINERAL SUPPLEMENTATION
     Dosage: UNK
     Route: 048
  5. SINUS [Concomitant]
     Active Substance: ACETAMINOPHEN\CHLORPHENIRAMINE MALEATE\PHENYLEPHRINE HYDROCHLORIDE
     Indication: SINUS DISORDER
     Dosage: UNK, QD
  6. XYREM [Suspect]
     Active Substance: SODIUM OXYBATE
     Dosage: 1.5 G, BID
     Route: 048
     Dates: start: 2014, end: 201404
  7. XYREM [Suspect]
     Active Substance: SODIUM OXYBATE
     Dosage: 1.5 G, BID
     Route: 048
     Dates: start: 201404
  8. SYNTHROID [Concomitant]
     Active Substance: LEVOTHYROXINE SODIUM
     Indication: THYROID DISORDER
     Dosage: 125 ?G, QD
     Route: 048
  9. VITAMIN D [Concomitant]
     Active Substance: CHOLECALCIFEROL
     Indication: FIBROMYALGIA
  10. AZO [Concomitant]
     Active Substance: PHENAZOPYRIDINE HYDROCHLORIDE
     Indication: DYSURIA
     Dosage: UNK, PRN
     Route: 048
  11. METOCLOPRAMIDE. [Concomitant]
     Active Substance: METOCLOPRAMIDE
     Indication: ARTHRITIS
     Dosage: 5.0 MG, TID
     Route: 048
  12. HYDROXYCHLOROQUINE [Concomitant]
     Active Substance: HYDROXYCHLOROQUINE
     Indication: ARTHRITIS
     Dosage: UNK, BID
     Route: 048
  13. HYDROXYCHLOROQUINE [Concomitant]
     Active Substance: HYDROXYCHLOROQUINE
     Indication: FIBROMYALGIA
  14. VITAMIN D [Concomitant]
     Active Substance: CHOLECALCIFEROL
     Indication: ARTHRITIS
     Dosage: 50000 U, UNK
     Route: 048
  15. IRON [Concomitant]
     Active Substance: IRON
     Indication: SUPPLEMENTATION THERAPY
     Dosage: UNK
     Route: 048
  16. AMPHETAMINE [Concomitant]
     Active Substance: AMPHETAMINE
     Indication: PRODUCT USED FOR UNKNOWN INDICATION
     Dosage: 20 MG, QD
     Route: 048
  17. OXYBUTYNIN [Concomitant]
     Active Substance: OXYBUTYNIN
     Indication: URINARY TRACT DISORDER
     Dosage: 5.0 MG, QD
     Route: 048
  18. CALCIUM [Concomitant]
     Active Substance: CALCIUM
     Indication: MINERAL SUPPLEMENTATION
     Dosage: UNK
     Route: 048
  19. XYREM [Suspect]
     Active Substance: SODIUM OXYBATE
     Dosage: 3.0 G, BID
     Route: 048
     Dates: start: 201403, end: 2014
  20. XYREM [Suspect]
     Active Substance: SODIUM OXYBATE
     Dosage: 1.5 G, SINGLE
     Route: 048
     Dates: start: 201404, end: 201404
  21. LISINOPRIL. [Concomitant]
     Active Substance: LISINOPRIL
     Indication: HYPERTENSION
     Dosage: 5.0 MG, QD
     Route: 048
  22. METHOTREXATE [Concomitant]
     Active Substance: METHOTREXATE
     Indication: FIBROMYALGIA
  23. COENZYME Q10 [Concomitant]
     Active Substance: UBIDECARENONE
     Indication: ENZYME SUPPLEMENTATION
  24. ACID REDUCER [Concomitant]
     Active Substance: CIMETIDINE\FAMOTIDINE\RANITIDINE HYDROCHLORIDE
     Indication: DYSPEPSIA
     Dosage: UNK
  25. MECLIZINE HCL [Concomitant]
     Active Substance: MECLIZINE HYDROCHLORIDE
     Indication: VERTIGO
     Dosage: 25 MG, BID
     Route: 048
  26. FLEXERIL [Concomitant]
     Active Substance: CYCLOBENZAPRINE HYDROCHLORIDE
     Indication: MUSCLE DISORDER
     Dosage: 10 MG, BID
     Route: 048
  27. SUCRALFATE. [Concomitant]
     Active Substance: SUCRALFATE
     Indication: FIBROMYALGIA
  28. XYREM [Suspect]
     Active Substance: SODIUM OXYBATE
     Indication: NARCOLEPSY
     Dosage: 2.25 G, BID
     Route: 048
     Dates: start: 20131212, end: 201403
  29. METHENAMINE [Concomitant]
     Active Substance: METHENAMINE
     Indication: URINARY TRACT DISORDER
     Dosage: 1.0 G, QD
     Route: 048
  30. LEXAPRO [Concomitant]
     Active Substance: ESCITALOPRAM OXALATE
     Indication: AFFECTIVE DISORDER
     Dosage: 20 MG, QD
     Route: 048
  31. GABAPENTIN. [Concomitant]
     Active Substance: GABAPENTIN
     Indication: PRODUCT USED FOR UNKNOWN INDICATION
     Dosage: 300 MG, TID
     Route: 048
  32. SIMVASTATIN. [Concomitant]
     Active Substance: SIMVASTATIN
     Indication: BLOOD CHOLESTEROL INCREASED
     Dosage: 10 MG, QD
     Route: 048
  33. MELOXICAM. [Concomitant]
     Active Substance: MELOXICAM
     Indication: PRODUCT USED FOR UNKNOWN INDICATION
     Dosage: 7.50 MG, BID
     Route: 048
  34. SUCRALFATE. [Concomitant]
     Active Substance: SUCRALFATE
     Indication: ARTHRITIS
     Dosage: 1.0 G, QID
     Route: 048
  35. METOCLOPRAMIDE. [Concomitant]
     Active Substance: METOCLOPRAMIDE
     Indication: FIBROMYALGIA
  36. METHOTREXATE [Concomitant]
     Active Substance: METHOTREXATE
     Indication: ARTHRITIS
     Dosage: 52.50 MG, QW
     Route: 048
  37. COENZYME Q10 [Concomitant]
     Active Substance: UBIDECARENONE
     Indication: SUPPLEMENTATION THERAPY
     Dosage: UNK
     Route: 048
  38. OXYCODONE AND ACETAMINOPHEN [Concomitant]
     Active Substance: ACETAMINOPHEN\OXYCODONE\OXYCODONE HYDROCHLORIDE
     Indication: PAIN
     Dosage: 10MG/325MG EVERY 6-8HRS
     Route: 048
  39. SALICYLATES NOS [Concomitant]
     Active Substance: UNSPECIFIED INGREDIENT
     Indication: ARTHRITIS
     Dosage: 500 MG, BID
     Route: 048

REACTIONS (11)
  - Condition aggravated [Not Recovered/Not Resolved]
  - Head injury [Recovered/Resolved]
  - Musculoskeletal pain [Not Recovered/Not Resolved]
  - Nausea [Not Recovered/Not Resolved]
  - Back pain [Not Recovered/Not Resolved]
  - Fall [Recovered/Resolved]
  - Joint injury [Not Recovered/Not Resolved]
  - Urinary incontinence [Not Recovered/Not Resolved]
  - Arthralgia [Not Recovered/Not Resolved]
  - Pain in extremity [Not Recovered/Not Resolved]
  - Dizziness [Not Recovered/Not Resolved]

NARRATIVE: CASE EVENT DATE: 20131212
